FAERS Safety Report 9883699 (Version 2)
Quarter: 2014Q2

REPORT INFORMATION
  Report Type: Spontaneous
  Country: FR (occurrence: FR)
  Receive Date: 20140210
  Receipt Date: 20140409
  Transmission Date: 20141212
  Serious: Yes (Hospitalization, Other)
  Sender: FDA-Public Use
  Company Number: FR-AMGEN-FRASP2014008914

PATIENT
  Age: 63 Year
  Sex: Female

DRUGS (6)
  1. ENBREL [Suspect]
     Indication: PRODUCT USED FOR UNKNOWN INDICATION
     Dosage: UNK
     Route: 058
     Dates: start: 201306, end: 20131009
  2. REMICADE [Suspect]
     Indication: ANKYLOSING SPONDYLITIS
     Dosage: UNK
     Route: 065
     Dates: start: 20131009
  3. METHOTREXATE [Concomitant]
     Indication: ANKYLOSING SPONDYLITIS
     Dosage: 10 MG, WEEKLY
     Route: 058
     Dates: start: 2003
  4. MICARDIS [Concomitant]
     Dosage: UNK
  5. LODOZ [Concomitant]
     Dosage: UNK
  6. BIPROFENID [Concomitant]
     Dosage: UNK

REACTIONS (3)
  - Ischaemic stroke [Recovered/Resolved with Sequelae]
  - Aphasia [Unknown]
  - Drug ineffective [Unknown]
